FAERS Safety Report 5583933-2 (Version None)
Quarter: 2008Q1

REPORT INFORMATION
  Report Type: 
  Country: None (occurrence: None)
  Receive Date: 20080103
  Receipt Date: 20080103
  Transmission Date: 20080703
  Serious: Yes (Hospitalization)
  Sender: FDA-Public Use
  Company Number: None

PATIENT
  Sex: Male
  Weight: 89 kg

DRUGS (2)
  1. FLUOROURACIL [Suspect]
     Dosage: 2050 MG
  2. MITOMYCIN [Suspect]
     Dosage: 20 MG

REACTIONS (2)
  - FEBRILE NEUTROPENIA [None]
  - HIV TEST POSITIVE [None]
